FAERS Safety Report 8556127-6 (Version None)
Quarter: 2012Q3

REPORT INFORMATION
  Report Type: 
  Country: None (occurrence: None)
  Receive Date: 20120801
  Receipt Date: 20120727
  Transmission Date: 20120928
  Serious: Yes (Life-Threatening, Hospitalization)
  Sender: FDA-Public Use
  Company Number: NL-GENZYME-CLOF-1002239

PATIENT
  Sex: Female
  Weight: 65 kg

DRUGS (3)
  1. CLOFARABINE [Suspect]
     Indication: ACUTE MYELOID LEUKAEMIA
     Dosage: 18 MG, UNK
     Route: 042
     Dates: start: 20120626
  2. AMSACRINE [Suspect]
     Indication: ACUTE MYELOID LEUKAEMIA
     Dosage: 210 MG, UNK
     Route: 042
     Dates: start: 20120629
  3. CYTARABINE [Suspect]
     Indication: ACUTE MYELOID LEUKAEMIA
     Dosage: 3600 MG, UNK
     Route: 042
     Dates: start: 20120626

REACTIONS (4)
  - DIARRHOEA [None]
  - MALAISE [None]
  - PYREXIA [None]
  - HYPOKALAEMIA [None]
